FAERS Safety Report 19262674 (Version 1)
Quarter: 2021Q2

REPORT INFORMATION
  Report Type: Spontaneous
  Country: US (occurrence: US)
  Receive Date: 20210517
  Receipt Date: 20210517
  Transmission Date: 20210717
  Serious: Yes (Disabling)
  Sender: FDA-Public Use
  Company Number: US-TEVA-2021-US-1913329

PATIENT
  Age: 34 Year
  Sex: Female
  Weight: 95.25 kg

DRUGS (6)
  1. DOCETAXEL SAGENT [Suspect]
     Active Substance: DOCETAXEL
     Indication: BREAST CANCER FEMALE
     Dosage: NUMBER OF CYCLE ? 04, FREQUENCY ? EVERY 14 DAYS; DOSAGE: 120MG (80MG 20MG/ML 4ML)
     Route: 042
     Dates: start: 20150512, end: 20150623
  2. DOCETAXEL ACCORD [Suspect]
     Active Substance: DOCETAXEL
     Indication: BREAST CANCER FEMALE
     Dosage: NO OF CYCLES: 04, FREQUENCY: EVERY 14 DAYS; DOSAGE: 120MG (20MG 20MG/ML 1ML SOLUTION)
     Route: 042
     Dates: start: 20150512, end: 20150623
  3. NEOSAR [Concomitant]
     Active Substance: CYCLOPHOSPHAMIDE
     Indication: BREAST CANCER FEMALE
     Dosage: STRENGTH: 500 MG
     Route: 065
  4. ELLENCE [Concomitant]
     Active Substance: EPIRUBICIN HYDROCHLORIDE
     Dosage: 50MG 2MG/ML 25ML
     Route: 065
  5. NEOSAR [Concomitant]
     Active Substance: CYCLOPHOSPHAMIDE
     Dosage: STRENGTH: 1GM
     Route: 065
  6. ELLENCE [Concomitant]
     Active Substance: EPIRUBICIN HYDROCHLORIDE
     Indication: BREAST CANCER FEMALE
     Dosage: 200MG 2MG/ML 100ML
     Route: 065

REACTIONS (5)
  - Alopecia areata [Not Recovered/Not Resolved]
  - Hair texture abnormal [Not Recovered/Not Resolved]
  - Madarosis [Not Recovered/Not Resolved]
  - Hair colour changes [Not Recovered/Not Resolved]
  - Alopecia totalis [Not Recovered/Not Resolved]

NARRATIVE: CASE EVENT DATE: 20151223
